FAERS Safety Report 10952611 (Version 1)
Quarter: 2015Q1

REPORT INFORMATION
  Report Type: Spontaneous
  Country: US (occurrence: US)
  Receive Date: 20150325
  Receipt Date: 20150325
  Transmission Date: 20150721
  Serious: Yes (Other)
  Sender: FDA-Public Use
  Company Number: US-AMGEN-USASP2015026808

PATIENT

DRUGS (1)
  1. FILGRASTIM [Suspect]
     Active Substance: FILGRASTIM
     Indication: PERIPHERAL VASCULAR DISORDER
     Dosage: 10 MUG/KG/DAY, Q3DAYS
     Route: 065

REACTIONS (3)
  - Off label use [Unknown]
  - Adenocarcinoma gastric [Unknown]
  - Peripheral vascular disorder [Unknown]
